FAERS Safety Report 20484391 (Version 1)
Quarter: 2022Q1

REPORT INFORMATION
  Report Type: Spontaneous
  Country: IN (occurrence: IN)
  Receive Date: 20220217
  Receipt Date: 20220217
  Transmission Date: 20220423
  Serious: Yes (Death, Other)
  Sender: FDA-Public Use
  Company Number: IN-PFIZER INC-2020358770

PATIENT
  Age: 53 Year
  Sex: Male

DRUGS (3)
  1. SUTENT [Suspect]
     Active Substance: SUNITINIB MALATE
     Indication: Metastatic renal cell carcinoma
     Dosage: 25 MG, 1X/DAY (FOR ONE MONTH - 12.5 2 CAPS/DAY, FOR 4 WEEKS CONTINUOUSLY AND 1-2 WEEKS GAP)
     Route: 048
     Dates: start: 20200916
  2. SUTENT [Suspect]
     Active Substance: SUNITINIB MALATE
     Dosage: 37.5 MG, 1X/DAY
  3. SUTENT [Suspect]
     Active Substance: SUNITINIB MALATE
     Dosage: 50 MG, CYCLIC (12.5 4 CAPS/DAY, FOR 4 WEEKS CONTINUOUSLY AND 1-2 WEEKS GAP)
     Dates: end: 202106

REACTIONS (7)
  - Neoplasm progression [Fatal]
  - Cholangiostomy [Unknown]
  - Skin discolouration [Unknown]
  - Nausea [Unknown]
  - Ulcer [Unknown]
  - Diarrhoea [Unknown]
  - Dysphagia [Unknown]
